FAERS Safety Report 7737978-4 (Version None)
Quarter: 2011Q3

REPORT INFORMATION
  Report Type: 
  Country: None (occurrence: None)
  Receive Date: 20110908
  Receipt Date: 20110829
  Transmission Date: 20111222
  Serious: Yes (Hospitalization, Disabling, Other)
  Sender: FDA-Public Use
  Company Number: US-ELI_LILLY_AND_COMPANY-US201109001575

PATIENT
  Sex: Female

DRUGS (3)
  1. LANTUS [Concomitant]
     Dosage: 8 U, EACH EVENING
  2. COUMADIN [Concomitant]
     Indication: ANTICOAGULANT THERAPY
     Dosage: UNK
     Dates: start: 20110401
  3. HUMALOG [Suspect]
     Indication: TYPE 1 DIABETES MELLITUS
     Dosage: 2 U, TID
     Dates: start: 20010101

REACTIONS (8)
  - VISUAL IMPAIRMENT [None]
  - HIP FRACTURE [None]
  - THROMBOSIS [None]
  - BLINDNESS UNILATERAL [None]
  - CARDIAC PACEMAKER INSERTION [None]
  - BLOOD VISCOSITY INCREASED [None]
  - INCORRECT DOSE ADMINISTERED [None]
  - FALL [None]
